FAERS Safety Report 6389569-8 (Version None)
Quarter: 2009Q4

REPORT INFORMATION
  Report Type: 
  Country: None (occurrence: None)
  Receive Date: 20091003
  Receipt Date: 20090929
  Transmission Date: 20100525
  Serious: Yes (Hospitalization)
  Sender: FDA-Public Use
  Company Number: A0809516A

PATIENT
  Age: 47 Year
  Sex: Male

DRUGS (1)
  1. ALGINIC ACID + ALUMINIUM HYDROXIDE + MAGNESIUM CARBONATE TAB (ALGIN.AC [Suspect]
     Dosage: ORAL
     Route: 048

REACTIONS (3)
  - DRUG ADMINISTRATION ERROR [None]
  - INCORRECT DOSE ADMINISTERED [None]
  - ULCER HAEMORRHAGE [None]
